FAERS Safety Report 19433151 (Version 2)
Quarter: 2021Q2

REPORT INFORMATION
  Report Type: Spontaneous
  Country: JP (occurrence: JP)
  Receive Date: 20210618
  Receipt Date: 20210625
  Transmission Date: 20210717
  Serious: Yes (Death, Hospitalization)
  Sender: FDA-Public Use
  Company Number: JP-JNJFOC-20210602015

PATIENT
  Age: 72 Year
  Sex: Female
  Weight: 73 kg

DRUGS (8)
  1. TRABECTEDIN [Suspect]
     Active Substance: TRABECTEDIN
     Indication: LEIOMYOSARCOMA METASTATIC
     Dosage: 2.1 MG/BODY, 24?HOUR INFUSION; CYCLE 1
     Route: 041
     Dates: start: 20210413
  2. ELDECALCITOL [Concomitant]
     Active Substance: ELDECALCITOL
     Indication: OSTEOPOROSIS
     Route: 065
     Dates: end: 20210526
  3. LOSARTAN POTASSIUM. [Concomitant]
     Active Substance: LOSARTAN POTASSIUM
     Indication: HYPERTENSION
     Route: 065
     Dates: end: 20210525
  4. PITAVASTATIN CALCIUM [Concomitant]
     Active Substance: PITAVASTATIN CALCIUM
     Indication: HYPERLIPIDAEMIA
     Route: 065
     Dates: end: 20210524
  5. TRABECTEDIN [Suspect]
     Active Substance: TRABECTEDIN
     Dosage: 1.8 MG/BODY/24?HOUR INFUSION; CYCLE 2
     Route: 041
     Dates: start: 20210513
  6. BISOPROLOL FUMARATE. [Concomitant]
     Active Substance: BISOPROLOL FUMARATE
     Indication: HYPERTENSION
     Route: 065
     Dates: end: 20210526
  7. XARELTO [Concomitant]
     Active Substance: RIVAROXABAN
     Indication: CEREBELLAR INFARCTION
     Route: 065
     Dates: end: 20210526
  8. MAXIPIME [Concomitant]
     Active Substance: CEFEPIME HYDROCHLORIDE
     Dates: start: 20210521

REACTIONS (5)
  - Rhabdomyolysis [Fatal]
  - Platelet count decreased [Unknown]
  - Febrile neutropenia [Unknown]
  - Stress cardiomyopathy [Unknown]
  - Decreased appetite [Unknown]

NARRATIVE: CASE EVENT DATE: 20210513
